FAERS Safety Report 17250688 (Version 2)
Quarter: 2020Q1

REPORT INFORMATION
  Report Type: Spontaneous
  Country: US (occurrence: US)
  Receive Date: 20200109
  Receipt Date: 20200207
  Transmission Date: 20200409
  Serious: Yes (Other)
  Sender: FDA-Public Use
  Company Number: US-GLAXOSMITHKLINE-US2020000958

PATIENT
  Sex: Male
  Weight: 81.18 kg

DRUGS (2)
  1. AVODART [Suspect]
     Active Substance: DUTASTERIDE
     Indication: PRODUCT USED FOR UNKNOWN INDICATION
     Dosage: UNK
     Route: 048
     Dates: start: 1990, end: 2020
  2. DUTASTERIDE. [Suspect]
     Active Substance: DUTASTERIDE
     Indication: BENIGN PROSTATIC HYPERPLASIA
     Route: 048

REACTIONS (4)
  - Prostate cancer [Recovering/Resolving]
  - Erectile dysfunction [Recovering/Resolving]
  - Retrograde ejaculation [Not Recovered/Not Resolved]
  - Libido decreased [Recovering/Resolving]

NARRATIVE: CASE EVENT DATE: 2013
